FAERS Safety Report 11729891 (Version 1)
Quarter: 2015Q4

REPORT INFORMATION
  Report Type: Spontaneous
  Country: FR (occurrence: FR)
  Receive Date: 20151112
  Receipt Date: 20151112
  Transmission Date: 20160304
  Serious: Yes (Death)
  Sender: FDA-Public Use
  Company Number: FR-SA-2015SA178891

PATIENT
  Age: 82 Year
  Sex: Male

DRUGS (15)
  1. ROCEPHINE [Suspect]
     Active Substance: CEFTRIAXONE SODIUM
     Indication: LUNG INFECTION
     Route: 042
     Dates: start: 20150410, end: 20150416
  2. KARDEGIC [Concomitant]
     Active Substance: ASPIRIN LYSINE
     Dosage: 1 SACHET PER DAY, 75MG?POWDER FOR ORAL SOLUTION IN DOSE SACHET
     Route: 048
     Dates: end: 20150424
  3. AMIKACIN [Interacting]
     Active Substance: AMIKACIN
     Indication: LUNG INFECTION
     Route: 042
     Dates: start: 20150410, end: 20150416
  4. DEROXAT [Suspect]
     Active Substance: PAROXETINE HYDROCHLORIDE
     Dosage: FILM-COATED DIVISIBLE TABLET
     Route: 048
     Dates: start: 201503, end: 20150423
  5. PREVISCAN [Concomitant]
     Active Substance: FLUINDIONE
     Dosage: STRENGTH 20MG
     Dates: end: 20150425
  6. DAFALGAN [Concomitant]
     Active Substance: ACETAMINOPHEN
     Dosage: MAXIMUM 6 PER DAY
     Dates: end: 20150425
  7. INNOVAIR [Concomitant]
     Active Substance: BECLOMETHASONE DIPROPIONATE\FORMOTEROL
     Dosage: 100/6 ?G/DOSE INHALATION SOLUTION, 1 INHALATION 2 TIMES PER DAY
     Route: 055
     Dates: end: 20150423
  8. JOSACINE [Suspect]
     Active Substance: JOSAMYCIN
     Indication: LUNG INFECTION
     Dosage: 17 TO 23 APR
     Route: 048
     Dates: end: 20150423
  9. RISPERDAL [Suspect]
     Active Substance: RISPERIDONE
     Dosage: FILM-COATED DIVISIBLE TABLET
     Route: 048
     Dates: start: 201503, end: 20150423
  10. DISCOTRINE [Concomitant]
     Active Substance: NITROGLYCERIN
     Dosage: TRANSDERMAL PATCH, 1 DAY
     Dates: end: 20150426
  11. LEVOTHYROX [Concomitant]
     Active Substance: LEVOTHYROXINE
     Dosage: 75MG
     Dates: end: 20150425
  12. SERESTA [Suspect]
     Active Substance: OXAZEPAM
     Dosage: 10MG
     Route: 048
     Dates: start: 201503, end: 20150423
  13. PERMIXON [Concomitant]
     Active Substance: SAW PALMETTO
     Dosage: STRENGTH: 160MG
     Dates: end: 20150424
  14. LASILIX SPECIAL [Interacting]
     Active Substance: FUROSEMIDE
     Dosage: SCORED TABLET
     Route: 048
     Dates: start: 201503, end: 20150425
  15. STILNOX [Concomitant]
     Active Substance: ZOLPIDEM TARTRATE
     Dosage: 10MG, FILM COATED DIVISIBLE TABLET
     Route: 048
     Dates: end: 20150423

REACTIONS (2)
  - Acute prerenal failure [Fatal]
  - Drug interaction [Fatal]

NARRATIVE: CASE EVENT DATE: 20150423
